FAERS Safety Report 14296537 (Version 3)
Quarter: 2018Q1

REPORT INFORMATION
  Report Type: Report from Study
  Country: US (occurrence: US)
  Receive Date: 20171218
  Receipt Date: 20180124
  Transmission Date: 20180509
  Serious: Yes (Other)
  Sender: FDA-Public Use
  Company Number: US-JNJFOC-20171220993

PATIENT
  Sex: Male

DRUGS (12)
  1. BABY ASPIRIN [Concomitant]
     Active Substance: ASPIRIN
  2. IMBRUVICA [Suspect]
     Active Substance: IBRUTINIB
     Indication: CHRONIC LYMPHOCYTIC LEUKAEMIA
     Route: 048
     Dates: start: 20171019
  3. LISINOPRIL. [Concomitant]
     Active Substance: LISINOPRIL
  4. METOPROLOL. [Concomitant]
     Active Substance: METOPROLOL
  5. ATORVASTATIN [Concomitant]
     Active Substance: ATORVASTATIN
  6. LATANOPROST/TIMOLOL [Concomitant]
     Active Substance: LATANOPROST\TIMOLOL
  7. TUMS [Concomitant]
     Active Substance: CALCIUM CARBONATE
     Indication: MUSCLE SPASMS
  8. TAMSULOSIN [Concomitant]
     Active Substance: TAMSULOSIN
  9. PEPTO-BISMOL [Concomitant]
     Active Substance: BISMUTH SUBSALICYLATE
  10. SULFASALAZINE. [Suspect]
     Active Substance: SULFASALAZINE
     Indication: PRODUCT USED FOR UNKNOWN INDICATION
     Route: 065
  11. FINASTERIDE. [Concomitant]
     Active Substance: FINASTERIDE
  12. VITAMIN D [Concomitant]
     Active Substance: CHOLECALCIFEROL

REACTIONS (5)
  - Ascites [Not Recovered/Not Resolved]
  - Nausea [Recovered/Resolved]
  - Peripheral swelling [Not Recovered/Not Resolved]
  - Pruritus [Recovered/Resolved with Sequelae]
  - Decreased appetite [Recovered/Resolved]

NARRATIVE: CASE EVENT DATE: 2017
